FAERS Safety Report 5414153-X (Version None)
Quarter: 2007Q3

REPORT INFORMATION
  Report Type: 
  Country: None (occurrence: None)
  Receive Date: 20070814
  Receipt Date: 20070802
  Transmission Date: 20080115
  Serious: Yes (Hospitalization, Other)
  Sender: FDA-Public Use
  Company Number: US-PFIZER INC-2007063947

PATIENT
  Sex: Male
  Weight: 53 kg

DRUGS (5)
  1. GEODON [Suspect]
     Indication: SCHIZOPHRENIA
     Route: 048
     Dates: start: 20070507, end: 20070728
  2. GEODON [Suspect]
     Indication: BIPOLAR DISORDER
  3. LAMICTAL [Suspect]
     Dates: start: 20070607, end: 20070710
  4. LITHIUM CARBONATE [Concomitant]
  5. CLONAZEPAM [Concomitant]

REACTIONS (7)
  - ABDOMINAL PAIN [None]
  - ADVERSE DRUG REACTION [None]
  - ANXIETY [None]
  - ASPARTATE AMINOTRANSFERASE INCREASED [None]
  - DIZZINESS [None]
  - ORTHOSTATIC HYPOTENSION [None]
  - RASH [None]
